FAERS Safety Report 18022580 (Version 1)
Quarter: 2020Q3

REPORT INFORMATION
  Report Type: Spontaneous
  Country: US (occurrence: US)
  Receive Date: 20200714
  Receipt Date: 20200714
  Transmission Date: 20201103
  Serious: No
  Sender: FDA-Public Use
  Company Number: US-DENTSPLY PHARMACEUTICAL-2019SCDP000681

PATIENT

DRUGS (2)
  1. LIDOCAINE. [Suspect]
     Active Substance: LIDOCAINE
     Indication: CEREBRAL ARTERY EMBOLISM
     Dosage: UNK
     Route: 042
  2. OXYGEN. [Suspect]
     Active Substance: OXYGEN
     Indication: CEREBRAL ARTERY EMBOLISM
     Dosage: HYPERBARIC OXYGEN HBO
     Route: 042

REACTIONS (1)
  - Drug effective for unapproved indication [Unknown]
